FAERS Safety Report 11204875 (Version 1)
Quarter: 2015Q2

REPORT INFORMATION
  Report Type: Spontaneous
  Country: US (occurrence: None)
  Receive Date: 20150618
  Receipt Date: 20150618
  Transmission Date: 20150821
  Serious: Yes (Hospitalization)
  Sender: FDA-Public Use
  Company Number: None

PATIENT
  Age: 42 Year
  Sex: Male
  Weight: 65.9 kg

DRUGS (2)
  1. LORAZEPAM. [Suspect]
     Active Substance: LORAZEPAM
     Indication: AGITATION
     Route: 048
     Dates: start: 20120712, end: 20120712
  2. RISPERIDONE. [Suspect]
     Active Substance: RISPERIDONE
     Indication: AGITATION
     Route: 048
     Dates: start: 20120712, end: 20120712

REACTIONS (6)
  - Treatment noncompliance [None]
  - Oxygen saturation decreased [None]
  - Respiratory depression [None]
  - Anxiety [None]
  - Agitation [None]
  - Unresponsive to stimuli [None]

NARRATIVE: CASE EVENT DATE: 20120712
